FAERS Safety Report 7224555-7 (Version None)
Quarter: 2011Q1

REPORT INFORMATION
  Report Type: 
  Country: None (occurrence: None)
  Receive Date: 20110113
  Receipt Date: 20101223
  Transmission Date: 20110831
  Serious: No
  Sender: FDA-Public Use
  Company Number: US-BAYER-2010-008996

PATIENT
  Sex: Female

DRUGS (7)
  1. METOPROLOL [Concomitant]
  2. ONDANSETRON [Concomitant]
  3. NEXAVAR [Suspect]
     Indication: HEPATIC NEOPLASM MALIGNANT
     Dosage: 100 MG, 2 BID ON EMPTY STOMACH
     Route: 048
     Dates: start: 20080801
  4. UNCODEABLE ^UNCLASSIFIABLE^ [Concomitant]
  5. ALLOPURINOL [Concomitant]
  6. LOMOTIL [DIPHENOXYLATE HYDROCHLORIDE] [Concomitant]
  7. TRAMADOL [Concomitant]

REACTIONS (2)
  - NAUSEA [None]
  - FATIGUE [None]
